FAERS Safety Report 24264357 (Version 2)
Quarter: 2024Q3

REPORT INFORMATION
  Report Type: Spontaneous
  Country: US (occurrence: US)
  Receive Date: 20240829
  Receipt Date: 20240829
  Transmission Date: 20241017
  Serious: Yes (Other)
  Sender: ASTELLAS
  Company Number: US-ASTELLAS-2024-AER-000727

PATIENT
  Age: 67 Year
  Sex: Male

DRUGS (3)
  1. PADCEV [Suspect]
     Active Substance: ENFORTUMAB VEDOTIN-EJFV
     Indication: Bladder cancer
     Dosage: STOP DATE REPORTED AS APPROX MAY-2024
     Route: 042
     Dates: start: 202312, end: 202405
  2. KEYTRUDA [Concomitant]
     Active Substance: PEMBROLIZUMAB
     Indication: Bladder cancer
     Dosage: ONGOING
     Route: 065
  3. KYTRIL [Concomitant]
     Active Substance: GRANISETRON HYDROCHLORIDE
     Indication: Product used for unknown indication
     Route: 065

REACTIONS (9)
  - Loss of consciousness [Recovering/Resolving]
  - Subarachnoid haemorrhage [Recovering/Resolving]
  - Subdural haematoma [Recovering/Resolving]
  - Fall [Recovering/Resolving]
  - Alopecia [Recovering/Resolving]
  - Rhinorrhoea [Recovering/Resolving]
  - Taste disorder [Recovering/Resolving]
  - Skin laceration [Recovering/Resolving]
  - Skin abrasion [Recovering/Resolving]
